FAERS Safety Report 5573306-0 (Version None)
Quarter: 2007Q4

REPORT INFORMATION
  Report Type: 
  Country: None (occurrence: None)
  Receive Date: 20071130
  Receipt Date: 20070123
  Transmission Date: 20080405
  Serious: Yes (Hospitalization)
  Sender: FDA-Public Use
  Company Number: WAES 0605USA04642

PATIENT
  Age: 67 Year
  Sex: Female

DRUGS (16)
  1. FOSAMAX [Suspect]
     Indication: OSTEOPOROSIS
     Dosage: 10 MG AM/ PO
     Route: 048
     Dates: start: 19960902
  2. FOSAMAX [Suspect]
     Indication: OSTEOPOROSIS
     Dosage: 70 MG WKY PO
     Route: 048
     Dates: start: 20001001, end: 20050501
  3. FOSAMAX [Suspect]
     Indication: OSTEOPOROSIS
     Dosage: 40 MG
     Dates: start: 20001001
  4. EVISTA [Concomitant]
  5. LEVAQUIN [Concomitant]
  6. LIPITOR [Concomitant]
  7. SF 500 PLUS [Concomitant]
  8. SYNTHROID [Concomitant]
  9. TRANSDERM SCOP [Concomitant]
  10. VALTREX [Concomitant]
  11. ACETAMINOPHEN W/ PROPOXYPHENE HCL [Concomitant]
  12. CALCIUM GLUCONATE [Concomitant]
  13. HYDROCODONE BITARTRATE [Concomitant]
  14. OXYCODONE [Concomitant]
  15. PENICILLIN V [Concomitant]
  16. PROCHLORPERAZINE [Concomitant]

REACTIONS (7)
  - ANXIETY [None]
  - DEPRESSION [None]
  - MYALGIA [None]
  - OSTEOMYELITIS [None]
  - OSTEONECROSIS [None]
  - PAIN [None]
  - WEIGHT DECREASED [None]
